FAERS Safety Report 6139178-0 (Version None)
Quarter: 2009Q2

REPORT INFORMATION
  Report Type: 
  Country: None (occurrence: None)
  Receive Date: 20090401
  Receipt Date: 20090319
  Transmission Date: 20091009
  Serious: Yes (Hospitalization)
  Sender: FDA-Public Use
  Company Number: HK-PFIZER INC-2009184817

PATIENT

DRUGS (15)
  1. MARAVIROC [Suspect]
     Indication: HIV INFECTION
     Dosage: 150 MG, 2X/DAY
     Route: 048
     Dates: start: 20080312
  2. DICLOFENAC SODIUM [Suspect]
     Dosage: UNK
     Route: 048
     Dates: start: 20080731
  3. NAPROSYN [Suspect]
     Dosage: UNK
     Route: 048
     Dates: start: 20071025
  4. TRAMADOL [Suspect]
     Dosage: UNK
     Route: 048
     Dates: start: 20080909
  5. RALTEGRAVIR [Concomitant]
     Dosage: 400 MG, 2X/DAY
     Route: 048
     Dates: start: 20080312
  6. ATAZANAVIR [Concomitant]
     Dosage: UNK
     Route: 048
     Dates: start: 20070404
  7. AMITRIPTYLINE [Concomitant]
     Dosage: UNK
     Route: 048
     Dates: start: 20080129
  8. CLOTRIMAZOLE [Concomitant]
     Dosage: UNK
     Route: 048
     Dates: start: 19991208
  9. VITAMIN K [Concomitant]
     Dosage: UNK
     Route: 048
     Dates: start: 20080304
  10. DOTHIEPIN [Concomitant]
     Dosage: UNK
     Route: 048
     Dates: start: 20060412
  11. ITRACONAZOLE [Concomitant]
     Dosage: UNK
     Route: 048
     Dates: start: 20020904
  12. LAMIVUDINE [Concomitant]
     Dosage: UNK
     Route: 048
     Dates: start: 19991208
  13. MULTI-VITAMINS [Concomitant]
     Dosage: UNK
     Route: 048
     Dates: start: 19991208
  14. FOLIC ACID [Concomitant]
     Dosage: UNK
     Route: 048
     Dates: start: 19991208
  15. FAMOTIDINE [Concomitant]
     Dosage: UNK
     Route: 048
     Dates: start: 20080731

REACTIONS (1)
  - CONSTIPATION [None]
